FAERS Safety Report 20198531 (Version 1)
Quarter: 2021Q4

REPORT INFORMATION
  Report Type: Spontaneous
  Country: US (occurrence: US)
  Receive Date: 20211217
  Receipt Date: 20211217
  Transmission Date: 20220303
  Serious: No
  Sender: FDA-Public Use
  Company Number: US-ALLERGAN-2113895US

PATIENT
  Sex: Male

DRUGS (2)
  1. DALVANCE [Suspect]
     Active Substance: DALBAVANCIN
     Indication: Cellulitis
     Dosage: 1 DF, SINGLE
     Route: 042
     Dates: start: 20210331, end: 20210331
  2. ALLERGY MEDICATION [Concomitant]
     Active Substance: DIPHENHYDRAMINE HYDROCHLORIDE
     Indication: Hypersensitivity

REACTIONS (2)
  - Pruritus [Not Recovered/Not Resolved]
  - Rash [Not Recovered/Not Resolved]

NARRATIVE: CASE EVENT DATE: 20210331
